FAERS Safety Report 12567500 (Version 1)
Quarter: 2016Q3

REPORT INFORMATION
  Report Type: Spontaneous
  Country: US (occurrence: US)
  Receive Date: 20160718
  Receipt Date: 20160718
  Transmission Date: 20161109
  Serious: No
  Sender: FDA-Public Use
  Company Number: US-ASTELLAS-2016US024938

PATIENT
  Age: 77 Year
  Sex: Female
  Weight: 49 kg

DRUGS (1)
  1. MYRBETRIQ [Suspect]
     Active Substance: MIRABEGRON
     Indication: POLLAKIURIA
     Route: 048
     Dates: start: 20160620, end: 20160627

REACTIONS (5)
  - Micturition disorder [Unknown]
  - Micturition urgency [Unknown]
  - Intentional product misuse [Unknown]
  - Urinary incontinence [Unknown]
  - Drug ineffective [Unknown]

NARRATIVE: CASE EVENT DATE: 20160620
